FAERS Safety Report 7249580-1 (Version None)
Quarter: 2011Q1

REPORT INFORMATION
  Report Type: 
  Country: None (occurrence: None)
  Receive Date: 20110128
  Receipt Date: 20110124
  Transmission Date: 20110831
  Serious: Yes (Other)
  Sender: FDA-Public Use
  Company Number: US-B.I. PHARMACEUTICALS,INC./RIDGEFIELD-2010-BP-14402PF

PATIENT
  Sex: Female
  Weight: 86.17 kg

DRUGS (6)
  1. COMBIVENT [Suspect]
     Indication: CHRONIC OBSTRUCTIVE PULMONARY DISEASE
  2. PREMARIN [Suspect]
     Indication: HYSTERECTOMY
     Dosage: 1.25 MG
     Route: 048
     Dates: start: 19950101
  3. LEVOXYL [Suspect]
     Indication: HYPOTHYROIDISM
     Dosage: 100 MCG
     Route: 048
     Dates: start: 19940101
  4. LIPITOR [Suspect]
     Indication: BLOOD CHOLESTEROL INCREASED
     Dosage: 40 MG
     Route: 048
  5. SPIRIVA [Suspect]
     Indication: CHRONIC OBSTRUCTIVE PULMONARY DISEASE
     Dosage: 18 MCG
  6. FISH OIL [Concomitant]
     Dosage: 2400 MG

REACTIONS (4)
  - BLOOD PRESSURE ABNORMAL [None]
  - ABDOMINAL DISCOMFORT [None]
  - DYSPNOEA [None]
  - CARDIAC PACEMAKER INSERTION [None]
